FAERS Safety Report 6143032-8 (Version None)
Quarter: 2009Q2

REPORT INFORMATION
  Report Type: 
  Country: None (occurrence: None)
  Receive Date: 20090401
  Receipt Date: 20090324
  Transmission Date: 20091009
  Serious: Yes (Other)
  Sender: FDA-Public Use
  Company Number: CHPA2009US07712

PATIENT
  Age: 15 Year
  Sex: Female
  Weight: 54.4 kg

DRUGS (2)
  1. MAALOX MS TOTAL STOMACH RELIEF (NCH) (BISMUTH SUBSALICYLATE) SUSPENSIO [Suspect]
     Indication: ABDOMINAL DISCOMFORT
     Dosage: 6 TSP, ONCE/SINGLE, ORAL
     Route: 048
     Dates: start: 20090323, end: 20090323
  2. AMOXICILIN (AMOXICILLIN) [Concomitant]

REACTIONS (3)
  - EYE SWELLING [None]
  - RASH [None]
  - SWELLING FACE [None]
